FAERS Safety Report 6148943-5 (Version None)
Quarter: 2009Q2

REPORT INFORMATION
  Report Type: 
  Country: None (occurrence: None)
  Receive Date: 20090406
  Receipt Date: 20090326
  Transmission Date: 20091009
  Serious: Yes (Hospitalization)
  Sender: FDA-Public Use
  Company Number: 2009-01029

PATIENT
  Sex: Female
  Weight: 80 kg

DRUGS (4)
  1. VELCADE [Suspect]
     Indication: MULTIPLE MYELOMA
     Dosage: 2.3 MG,  INTRAVENOUS
     Route: 042
     Dates: start: 20090120, end: 20090306
  2. CYCLOPHOSPHAMIDE [Suspect]
     Indication: MULTIPLE MYELOMA
     Dosage: 1575 MG, INTRAVENOUS
     Route: 042
     Dates: start: 20090120, end: 20090306
  3. DEXAMETHASONE TAB [Suspect]
     Indication: MULTIPLE MYELOMA
     Dosage: 40 MG, , ORAL
     Route: 048
     Dates: start: 20090120, end: 20090310
  4. BISPHOSPHONATES [Concomitant]

REACTIONS (8)
  - CARDIOVASCULAR DISORDER [None]
  - DEHYDRATION [None]
  - DIARRHOEA [None]
  - GENERAL PHYSICAL HEALTH DETERIORATION [None]
  - HYPOTENSION [None]
  - NAUSEA [None]
  - PYREXIA [None]
  - VOMITING [None]
